FAERS Safety Report 8779571 (Version 1)
Quarter: 2012Q4

REPORT INFORMATION
  Report Type: 
  Country: US (occurrence: US)
  Receive Date: 20120912
  Receipt Date: 20120912
  Transmission Date: 20130627
  Serious: Yes (Other)
  Sender: FDA-Public Use
  Company Number: US-ROCHE-1007343

PATIENT
  Age: 76 Year
  Sex: Female

DRUGS (11)
  1. CAPECITABINE [Suspect]
     Indication: BREAST CANCER METASTATIC
     Dosage: 2 wks on and 2 wks off
     Route: 065
     Dates: start: 20080618
  2. PHENYTOIN [Interacting]
     Indication: COMPLEX PARTIAL SEIZURES
     Dosage: 400-460 mg/day
     Route: 065
     Dates: start: 1992
  3. PHENYTOIN [Interacting]
     Dosage: dose reduced
     Route: 065
  4. GLUCOSAMINE [Concomitant]
  5. HYDROCHLOROTHIAZIDE [Concomitant]
  6. ENALAPRIL [Concomitant]
  7. NAPROXEN SODIUM [Concomitant]
  8. LEVOTHYROXINE [Concomitant]
  9. LEVOTHYROXINE [Concomitant]
  10. ZOLEDRONIC ACID [Concomitant]
  11. MULTIVITAMIN [Concomitant]

REACTIONS (8)
  - Drug interaction [Unknown]
  - Ataxia [Unknown]
  - Fall [Unknown]
  - Sedation [Unknown]
  - Fatigue [Unknown]
  - Skin disorder [Unknown]
  - Skin fissures [Unknown]
  - Skin haemorrhage [Unknown]
